FAERS Safety Report 10385116 (Version 2)
Quarter: 2014Q3

REPORT INFORMATION
  Report Type: Spontaneous
  Country: DE (occurrence: DE)
  Receive Date: 20140814
  Receipt Date: 20140815
  Transmission Date: 20150326
  Serious: Yes (Life-Threatening, Other)
  Sender: FDA-Public Use
  Company Number: DE-ASTRAZENECA-2014SE57132

PATIENT
  Age: 16197 Day
  Sex: Female
  Weight: 52 kg

DRUGS (10)
  1. SEROQUEL [Suspect]
     Active Substance: QUETIAPINE FUMARATE
     Dosage: REDUCED TO 75 - 150 MG
     Route: 048
     Dates: end: 2011
  2. SEROQUEL [Suspect]
     Active Substance: QUETIAPINE FUMARATE
     Route: 048
     Dates: start: 2011, end: 2012
  3. SEROQUEL [Suspect]
     Active Substance: QUETIAPINE FUMARATE
     Dosage: DAILY DOSE OF 25 - 50 MG
     Route: 048
     Dates: start: 2012
  4. SEROQUEL [Suspect]
     Active Substance: QUETIAPINE FUMARATE
     Dosage: TOTAL DAILY DOSE OF 275 MG
     Route: 048
     Dates: start: 2010
  5. SEROQUEL [Suspect]
     Active Substance: QUETIAPINE FUMARATE
     Dosage: TOTAL DAILY DOSE OF 275 MG
     Route: 048
     Dates: start: 2010
  6. SEROQUEL [Suspect]
     Active Substance: QUETIAPINE FUMARATE
     Dosage: DAILY DOSE OF 25 - 50 MG
     Route: 048
     Dates: start: 2012
  7. SEROQUEL [Suspect]
     Active Substance: QUETIAPINE FUMARATE
     Dosage: DOSE OF 150 MG EACH
     Route: 048
     Dates: start: 2014
  8. SEROQUEL [Suspect]
     Active Substance: QUETIAPINE FUMARATE
     Dosage: REDUCED TO 75 - 150 MG
     Route: 048
     Dates: end: 2011
  9. SEROQUEL [Suspect]
     Active Substance: QUETIAPINE FUMARATE
     Route: 048
     Dates: start: 2011, end: 2012
  10. SEROQUEL [Suspect]
     Active Substance: QUETIAPINE FUMARATE
     Dosage: DOSE OF 150 MG EACH
     Route: 048
     Dates: start: 2014

REACTIONS (1)
  - Breast cancer [Not Recovered/Not Resolved]

NARRATIVE: CASE EVENT DATE: 20140801
